FAERS Safety Report 5782091-9 (Version None)
Quarter: 2008Q2

REPORT INFORMATION
  Report Type: 
  Country: None (occurrence: None)
  Receive Date: 20080623
  Receipt Date: 20080611
  Transmission Date: 20081010
  Serious: Yes (Hospitalization)
  Sender: FDA-Public Use
  Company Number: FR-ROCHE-569984

PATIENT
  Sex: Male

DRUGS (11)
  1. XELODA [Suspect]
     Indication: CHEMOTHERAPY
     Route: 048
     Dates: start: 20071016, end: 20071022
  2. GEMZAR [Suspect]
     Indication: CHEMOTHERAPY
     Route: 042
     Dates: start: 20070621, end: 20070927
  3. PANTOPRAZOLE SODIUM [Concomitant]
  4. CORTANCYL [Concomitant]
  5. AMLODIPINE [Concomitant]
  6. EUPRESSYL [Concomitant]
     Dosage: REPORTED AS EUPRESSYL 60.
  7. TAREG [Concomitant]
     Dosage: REPORTED AS TAREG 80.
  8. TEMERIT [Concomitant]
     Dosage: REPORTED AS TEMERIT 5.
  9. LANTUS [Concomitant]
  10. FOLIC ACID [Concomitant]
  11. NITRODERM [Concomitant]
     Dosage: DRUG REPORTED AS NITRIDERM TTS 10 MG /24 HOURS.
     Route: 062

REACTIONS (1)
  - HAEMOLYTIC URAEMIC SYNDROME [None]
